FAERS Safety Report 24294318 (Version 1)
Quarter: 2024Q3

REPORT INFORMATION
  Report Type: Report from Study
  Country: US (occurrence: None)
  Receive Date: 20240906
  Receipt Date: 20240906
  Transmission Date: 20241016
  Serious: Yes (Other)
  Sender: ASTRAZENECA
  Company Number: 2024A197936

PATIENT
  Sex: Female

DRUGS (1)
  1. TEZSPIRE [Suspect]
     Active Substance: TEZEPELUMAB-EKKO

REACTIONS (6)
  - Carpal tunnel syndrome [Unknown]
  - Diabetes mellitus [Unknown]
  - Seasonal allergy [Unknown]
  - Rhinitis allergic [Unknown]
  - Allergy to arthropod sting [Unknown]
  - Asthma [Unknown]
